FAERS Safety Report 16274448 (Version 2)
Quarter: 2019Q2

REPORT INFORMATION
  Report Type: Report from Study
  Country: None (occurrence: US)
  Receive Date: 20190504
  Receipt Date: 20190603
  Transmission Date: 20190711
  Serious: Yes (Hospitalization, Other)
  Sender: FDA-Public Use
  Company Number: US-ABBVIE-19K-163-2769020-00

PATIENT
  Age: 38 Year
  Sex: Male
  Weight: 118.04 kg

DRUGS (5)
  1. HUMIRA [Suspect]
     Active Substance: ADALIMUMAB
     Indication: PSORIASIS
  2. ENBREL [Suspect]
     Active Substance: ETANERCEPT
     Indication: PSORIATIC ARTHROPATHY
     Route: 065
     Dates: start: 201905
  3. HUMIRA [Suspect]
     Active Substance: ADALIMUMAB
     Indication: PSORIATIC ARTHROPATHY
     Route: 058
     Dates: start: 2015, end: 2017
  4. HUMIRA [Suspect]
     Active Substance: ADALIMUMAB
     Indication: PSORIATIC ARTHROPATHY
     Route: 058
     Dates: start: 201905, end: 201905
  5. ACYCLOVIR. [Concomitant]
     Active Substance: ACYCLOVIR
     Indication: HERPES SIMPLEX

REACTIONS (8)
  - Pyrexia [Recovered/Resolved]
  - Neuralgia [Recovered/Resolved]
  - Procedural pain [Recovered/Resolved]
  - Device related sepsis [Recovered/Resolved]
  - Urinary tract infection [Recovered/Resolved]
  - Spinal cord neoplasm [Recovered/Resolved]
  - Gastrooesophageal reflux disease [Not Recovered/Not Resolved]
  - Psoriatic arthropathy [Recovering/Resolving]

NARRATIVE: CASE EVENT DATE: 2017
